FAERS Safety Report 24680200 (Version 1)
Quarter: 2024Q4

REPORT INFORMATION
  Report Type: Spontaneous
  Country: US (occurrence: US)
  Receive Date: 20241129
  Receipt Date: 20241129
  Transmission Date: 20250115
  Serious: Yes (Life-Threatening, Hospitalization, Other)
  Sender: BRACCO
  Company Number: US-BRACCO-2024US01900

PATIENT
  Age: 69 Year
  Sex: Female

DRUGS (15)
  1. LUMASON [Suspect]
     Active Substance: SULFUR HEXAFLUORIDE
     Indication: Echocardiogram
     Dosage: 5 ML, SINGLE
     Route: 042
     Dates: start: 20240327, end: 20240327
  2. LUMASON [Suspect]
     Active Substance: SULFUR HEXAFLUORIDE
     Indication: Echocardiogram
     Dosage: 5 ML, SINGLE
     Route: 042
     Dates: start: 20240327, end: 20240327
  3. LUMASON [Suspect]
     Active Substance: SULFUR HEXAFLUORIDE
     Indication: Echocardiogram
     Dosage: 5 ML, SINGLE
     Route: 042
     Dates: start: 20240327, end: 20240327
  4. DEXAMETHASONE [Concomitant]
     Active Substance: DEXAMETHASONE
     Dosage: 8 MG
     Dates: start: 20240327
  5. ETOMIDATE [Concomitant]
     Active Substance: ETOMIDATE
     Dosage: 10 MG
     Dates: start: 20240327
  6. FENTANYL [Concomitant]
     Active Substance: FENTANYL
     Dosage: 100 MCG
     Dates: start: 20240327
  7. LIDOCAINE [Concomitant]
     Active Substance: LIDOCAINE
     Dosage: 5 ML
     Dates: start: 20240327
  8. METOCLOPRAMIDE [Concomitant]
     Active Substance: METOCLOPRAMIDE
     Dosage: 10 MG
     Dates: start: 20240327
  9. MIDAZOLAM [Concomitant]
     Active Substance: MIDAZOLAM
     Dosage: 2 MG
     Route: 042
     Dates: start: 20240327
  10. ONDANSETRON [Concomitant]
     Active Substance: ONDANSETRON
     Dosage: 4 MG
     Dates: start: 20240327
  11. PHENYLEPHRINE [Concomitant]
     Active Substance: PHENYLEPHRINE
     Dosage: 200 MCG
     Route: 042
     Dates: start: 20240327
  12. PROPOFOL [Concomitant]
     Active Substance: PROPOFOL
     Dosage: 40 MG
     Route: 042
     Dates: start: 20240327
  13. CALCIUM CHLORIDE\POTASSIUM CHLORIDE\SODIUM LACTATE [Concomitant]
     Active Substance: CALCIUM CHLORIDE\POTASSIUM CHLORIDE\SODIUM LACTATE
     Dosage: 100 ML/HR
     Route: 042
     Dates: start: 20240327
  14. SUCCINYLCHOLINE CHLORIDE [Concomitant]
     Active Substance: SUCCINYLCHOLINE CHLORIDE
     Dosage: 160 MG
     Route: 042
     Dates: start: 20240327
  15. WARFARIN SODIUM [Concomitant]
     Active Substance: WARFARIN SODIUM

REACTIONS (1)
  - Anaphylactic shock [Recovered/Resolved]

NARRATIVE: CASE EVENT DATE: 20240327
